FAERS Safety Report 7541463 (Version 3)
Quarter: 2012Q4

REPORT INFORMATION
  Report Type: 
  Country: US (occurrence: US)
  Receive Date: 20100815
  Receipt Date: 20121121
  Transmission Date: 20130627
  Serious: Yes (Death, Other)
  Sender: FDA-Public Use
  Company Number: US-BAYER-201030098NA

PATIENT
  Age: 49 Year
  Sex: Male
  Weight: 118 kg

DRUGS (23)
  1. TRASYLOL [Suspect]
     Indication: AORTIC VALVE REPLACEMENT
     Dosage: 200ml load followed by 50ml/hr continuous infusion
     Route: 042
     Dates: start: 20040108, end: 20040108
  2. TRASYLOL [Suspect]
     Indication: AORTIC VALVE REPLACEMENT
     Dosage: 200ml pump prime
  3. ACETYLSALICYLIC ACID (} 100 MG) [Concomitant]
  4. LASIX [Concomitant]
     Dosage: 80 mg, TID
  5. METOLAZONE [Concomitant]
     Dosage: UNK
     Dates: start: 200312
  6. POTASSIUM CHLORIDE [Concomitant]
  7. PRILOSEC [Concomitant]
  8. PROPRANOLOL [Concomitant]
     Dosage: 10 mg, TID
     Dates: start: 200312
  9. PROTONIX [Concomitant]
     Dosage: 40 mg, QD
     Dates: start: 200312
  10. SPIRONOLACTONE [Concomitant]
     Dosage: 25 mg, QD
     Dates: start: 200312
  11. DIAZEPAM [Concomitant]
     Dosage: UNK
     Dates: start: 20040108, end: 20040108
  12. FENTANYL [Concomitant]
     Dosage: UNK
     Dates: start: 20040108, end: 20040108
  13. HEPARIN [Concomitant]
     Dosage: UNK
     Dates: start: 20040108, end: 20040108
  14. LEVOPHED [Concomitant]
     Dosage: UNK
     Dates: start: 20040108
  15. PANCURONIUM [Concomitant]
     Dosage: UNK
     Dates: start: 20040108, end: 20040108
  16. PROTAMINE [Concomitant]
     Dosage: UNK
     Dates: start: 20040108, end: 20040108
  17. VERSED [Concomitant]
     Dosage: UNK
     Dates: start: 20040108, end: 20040108
  18. MAGNESIUM SULFATE [Concomitant]
     Dosage: UNK
     Dates: start: 200312
  19. LEVAQUIN [Concomitant]
     Dosage: 250 mg, QD
     Dates: end: 200312
  20. CALCIUM CHLORIDE [Concomitant]
     Dosage: UNK
     Dates: start: 20040108, end: 20040108
  21. FORANE [Concomitant]
     Dosage: UNK
     Dates: start: 20040108, end: 20040108
  22. PANCURONIUM [Concomitant]
  23. PROTAMINE [Concomitant]
     Dosage: UNK
     Dates: start: 20040108, end: 20040108

REACTIONS (14)
  - Renal injury [Recovered/Resolved with Sequelae]
  - Renal failure [Recovered/Resolved with Sequelae]
  - Multi-organ failure [Unknown]
  - Death [Fatal]
  - Anxiety [Unknown]
  - Fear [Unknown]
  - Pain [Unknown]
  - Depression [Unknown]
  - Injury [Unknown]
  - Anxiety [Unknown]
  - Disability [Unknown]
  - Emotional distress [Unknown]
  - Anhedonia [Unknown]
  - Off label use [None]
